FAERS Safety Report 25629767 (Version 1)
Quarter: 2025Q3

REPORT INFORMATION
  Report Type: Spontaneous
  Country: US (occurrence: US)
  Receive Date: 20250731
  Receipt Date: 20250731
  Transmission Date: 20251020
  Serious: No
  Sender: SANOFI AVENTIS
  Company Number: US-SA-2025SA215061

PATIENT
  Age: 39 Year
  Sex: Female
  Weight: 61.224 kg

DRUGS (2)
  1. DUPIXENT [Suspect]
     Active Substance: DUPILUMAB
     Indication: Dermatitis atopic
     Route: 058
     Dates: start: 202505, end: 202505
  2. DUPIXENT [Suspect]
     Active Substance: DUPILUMAB
     Dosage: 300 MG, QOW
     Route: 058
     Dates: start: 20250722

REACTIONS (17)
  - Dermatitis atopic [Unknown]
  - Skin fissures [Unknown]
  - Skin exfoliation [Unknown]
  - Dry skin [Unknown]
  - Pruritus [Unknown]
  - Stress [Unknown]
  - Condition aggravated [Unknown]
  - Sleep disorder due to a general medical condition [Unknown]
  - Haemorrhage [Unknown]
  - Crying [Unknown]
  - Injection site erythema [Not Recovered/Not Resolved]
  - Injection site vesicles [Not Recovered/Not Resolved]
  - Injection site pruritus [Not Recovered/Not Resolved]
  - Injection site pain [Not Recovered/Not Resolved]
  - Discomfort [Not Recovered/Not Resolved]
  - Pharyngitis streptococcal [Unknown]
  - Inappropriate schedule of product administration [Unknown]

NARRATIVE: CASE EVENT DATE: 20250101
